FAERS Safety Report 7592691-1 (Version None)
Quarter: 2011Q3

REPORT INFORMATION
  Report Type: 
  Country: None (occurrence: None)
  Receive Date: 20110706
  Receipt Date: 20110629
  Transmission Date: 20111222
  Serious: No
  Sender: FDA-Public Use
  Company Number: US-PFIZER INC-2011145690

PATIENT
  Sex: Female
  Weight: 68 kg

DRUGS (1)
  1. VIAGRA [Suspect]
     Dosage: UNK
     Route: 048
     Dates: start: 20110628

REACTIONS (2)
  - ACCIDENTAL EXPOSURE [None]
  - SEXUAL DYSFUNCTION [None]
